FAERS Safety Report 9959177 (Version 2)
Quarter: 2014Q1

REPORT INFORMATION
  Report Type: Report from Study
  Country: US (occurrence: US)
  Receive Date: 20140305
  Receipt Date: 20140305
  Transmission Date: 20141002
  Serious: No
  Sender: FDA-Public Use
  Company Number: US-ABBVIE-13P-163-1090114-00

PATIENT
  Age: 60 Year
  Sex: Male
  Weight: 102.15 kg

DRUGS (7)
  1. HUMIRA [Suspect]
     Indication: PSORIASIS
     Dosage: LOADING DOSE
     Route: 058
     Dates: start: 20130415
  2. CLOBEASOL SPRAY TOPICAL SPRAY [Concomitant]
     Indication: PRODUCT USED FOR UNKNOWN INDICATION
  3. KLONOPIN [Concomitant]
     Indication: DEPRESSION
  4. BUPROPION [Concomitant]
     Indication: DEPRESSION
  5. SERTRALINE [Concomitant]
     Indication: DEPRESSION
  6. SEROQUEL [Concomitant]
     Indication: DEPRESSION
  7. BENADRYL [Concomitant]
     Indication: SEASONAL ALLERGY

REACTIONS (2)
  - Psoriasis [Not Recovered/Not Resolved]
  - Unevaluable event [Not Recovered/Not Resolved]
